FAERS Safety Report 19656781 (Version 1)
Quarter: 2021Q3

REPORT INFORMATION
  Report Type: Spontaneous
  Country: US (occurrence: US)
  Receive Date: 20210804
  Receipt Date: 20210804
  Transmission Date: 20211014
  Serious: Yes (Other)
  Sender: FDA-Public Use
  Company Number: US-PURDUE-USA-2020-0280415

PATIENT
  Sex: Male

DRUGS (1)
  1. HYDROCODONE BITARTRATE (SIMILAR TO NDA 206627) [Suspect]
     Active Substance: HYDROCODONE BITARTRATE
     Indication: PAIN
     Dosage: UNKNOWN
     Route: 065
     Dates: start: 2007

REACTIONS (10)
  - Dizziness [Unknown]
  - Confusional state [Unknown]
  - Stress [Unknown]
  - Disorientation [Unknown]
  - Pain [Unknown]
  - Emotional distress [Unknown]
  - Loss of personal independence in daily activities [Unknown]
  - Fall [Unknown]
  - Injury [Unknown]
  - Faecaloma [Unknown]
